FAERS Safety Report 19402008 (Version 1)
Quarter: 2021Q2

REPORT INFORMATION
  Report Type: Spontaneous
  Country: US (occurrence: US)
  Receive Date: 20210611
  Receipt Date: 20210611
  Transmission Date: 20210717
  Serious: Yes (Hospitalization)
  Sender: FDA-Public Use
  Company Number: US-INFO-001242

PATIENT
  Age: 74 Year
  Sex: Female

DRUGS (3)
  1. ZOLEDRONIC ACID INJECTION 5 MG [Suspect]
     Active Substance: ZOLEDRONIC ACID
     Indication: OSTEOPOROSIS
     Dosage: INFUSED OVER 40 MINUTES
     Route: 065
  2. TYLENOL 650 MG [Concomitant]
     Dosage: INFUSED OVER 30 MINUTES
     Route: 065
  3. CALCIUM CARBONATE (ANTACID) [Concomitant]
     Active Substance: CALCIUM CARBONATE
     Dosage: INFUSED OVER 30 MINUTES
     Route: 065

REACTIONS (4)
  - Myalgia [Unknown]
  - Arthralgia [Unknown]
  - Back pain [Unknown]
  - Off label use [Unknown]
